FAERS Safety Report 6112272-6 (Version None)
Quarter: 2009Q1

REPORT INFORMATION
  Report Type: 
  Country: None (occurrence: None)
  Receive Date: 20090311
  Receipt Date: 20090311
  Transmission Date: 20090719
  Serious: Yes (Life-Threatening)
  Sender: FDA-Public Use
  Company Number: None

PATIENT
  Age: 51 Year
  Sex: Male
  Weight: 79.4 kg

DRUGS (2)
  1. VIVAGLOBIN [Suspect]
     Indication: IMMUNODEFICIENCY COMMON VARIABLE
     Dosage: 8.96 GMS (56ML) WEEKLY SUBCUT
     Route: 058
     Dates: start: 20090304
  2. VIVAGLOBIN [Suspect]

REACTIONS (5)
  - ABDOMINAL DISTENSION [None]
  - ASTHENIA [None]
  - INFUSION SITE REACTION [None]
  - PAIN [None]
  - THROAT TIGHTNESS [None]
